FAERS Safety Report 25259948 (Version 1)
Quarter: 2025Q2

REPORT INFORMATION
  Report Type: Spontaneous
  Country: US (occurrence: US)
  Receive Date: 20250501
  Receipt Date: 20250501
  Transmission Date: 20250716
  Serious: No
  Sender: PADAGIS
  Company Number: US-PADAGIS-2025PAD00465

PATIENT

DRUGS (3)
  1. CICLOPIROX [Suspect]
     Active Substance: CICLOPIROX
     Indication: Dry skin
     Route: 065
  2. CICLOPIROX [Suspect]
     Active Substance: CICLOPIROX
     Indication: Skin exfoliation
     Route: 065
     Dates: start: 20250420, end: 20250420
  3. CICLOPIROX [Suspect]
     Active Substance: CICLOPIROX
     Indication: Pruritus

REACTIONS (1)
  - Drug ineffective [Unknown]

NARRATIVE: CASE EVENT DATE: 20250420
